FAERS Safety Report 5130002-1 (Version None)
Quarter: 2006Q4

REPORT INFORMATION
  Report Type: 
  Country: None (occurrence: None)
  Receive Date: 20061013
  Receipt Date: 20060930
  Transmission Date: 20070319
  Serious: Yes (Hospitalization)
  Sender: FDA-Public Use
  Company Number: 2006118688

PATIENT
  Sex: Male

DRUGS (1)
  1. LYRICA [Suspect]
     Indication: NEURALGIA
     Dosage: ORAL
     Route: 048

REACTIONS (4)
  - CARDIAC PACEMAKER INSERTION [None]
  - DYSPNOEA [None]
  - FLUID RETENTION [None]
  - OEDEMA PERIPHERAL [None]
